FAERS Safety Report 9602948 (Version 2)
Quarter: 2013Q4

REPORT INFORMATION
  Report Type: Spontaneous
  Country: US (occurrence: None)
  Receive Date: 20131003
  Receipt Date: 20131011
  Transmission Date: 20140711
  Serious: Yes (Other)
  Sender: FDA-Public Use
  Company Number: ADR-2013-01769

PATIENT
  Sex: Female

DRUGS (3)
  1. BACLOFEN [Suspect]
     Indication: PAIN
  2. MORPHINE [Suspect]
  3. DILAUDID [Suspect]

REACTIONS (10)
  - Sarcoidosis [None]
  - Condition aggravated [None]
  - Impaired work ability [None]
  - Somnolence [None]
  - Haemorrhoids [None]
  - Gallbladder disorder [None]
  - Ovarian cyst [None]
  - Loss of employment [None]
  - Haemorrhoidal haemorrhage [None]
  - Medical device pain [None]
